FAERS Safety Report 13900945 (Version 2)
Quarter: 2017Q3

REPORT INFORMATION
  Report Type: Other
  Country: CA (occurrence: CA)
  Receive Date: 20170824
  Receipt Date: 20170922
  Transmission Date: 20171127
  Serious: Yes (Other)
  Sender: FDA-Public Use
  Company Number: CA-APOTEX-2017AP016780

PATIENT
  Age: 63 Year
  Sex: Male

DRUGS (4)
  1. BOSUTINIB [Suspect]
     Active Substance: BOSUTINIB
     Indication: CHRONIC MYELOID LEUKAEMIA
     Dosage: 500 MG, QD
     Route: 048
  2. NILOTINIB [Suspect]
     Active Substance: NILOTINIB
     Indication: CHRONIC MYELOID LEUKAEMIA
     Dosage: UNK
     Route: 065
  3. DASATINIB [Suspect]
     Active Substance: DASATINIB
     Indication: CHRONIC MYELOID LEUKAEMIA
     Dosage: UNK
     Route: 065
  4. APO-IMATINIB [Suspect]
     Active Substance: IMATINIB
     Indication: CHRONIC MYELOID LEUKAEMIA
     Dosage: UNK
     Route: 065

REACTIONS (4)
  - Philadelphia chromosome positive [Recovering/Resolving]
  - Drug intolerance [Recovering/Resolving]
  - Epilepsy [Recovering/Resolving]
  - Drug resistance [Recovering/Resolving]
